FAERS Safety Report 4340190-2 (Version None)
Quarter: 2004Q2

REPORT INFORMATION
  Report Type: 
  Country: None (occurrence: None)
  Receive Date: 20040416
  Receipt Date: 20040302
  Transmission Date: 20050107
  Serious: Yes (Disabling)
  Sender: FDA-Public Use
  Company Number: US-MERCK-0403USA00237

PATIENT
  Age: 62 Year
  Sex: Female
  Weight: 65 kg

DRUGS (9)
  1. CALCIUM (UNSPECIFIED) [Concomitant]
     Indication: OSTEOPOROSIS
     Route: 048
     Dates: start: 19940101
  2. CELEXA [Concomitant]
     Route: 065
  3. VALIUM [Concomitant]
     Indication: ANXIETY
     Route: 048
     Dates: start: 20010101
  4. LEXAPRO [Concomitant]
     Indication: ANXIETY
     Route: 048
     Dates: start: 20040101
  5. CLIMARA [Concomitant]
     Indication: OESTROGEN REPLACEMENT THERAPY
     Route: 065
     Dates: start: 20030101
  6. ZETIA [Suspect]
     Indication: BLOOD CHOLESTEROL INCREASED
     Route: 048
     Dates: start: 20040219, end: 20040228
  7. ZETIA [Suspect]
     Indication: HYPERLIPIDAEMIA
     Route: 048
     Dates: start: 20040219, end: 20040228
  8. GLOBULIN, IMMUNE [Concomitant]
     Route: 065
  9. SYNTHROID [Concomitant]
     Indication: HYPOTHYROIDISM
     Route: 048
     Dates: start: 19740101

REACTIONS (9)
  - ARTHRALGIA [None]
  - CHEST PAIN [None]
  - DYSPNOEA [None]
  - FATIGUE [None]
  - INCREASED APPETITE [None]
  - INSOMNIA [None]
  - PAIN IN EXTREMITY [None]
  - PSYCHOMOTOR HYPERACTIVITY [None]
  - TACHYCARDIA [None]
